FAERS Safety Report 10853517 (Version 1)
Quarter: 2015Q1

REPORT INFORMATION
  Report Type: Spontaneous
  Country: US (occurrence: None)
  Receive Date: 20150218
  Receipt Date: 20150218
  Transmission Date: 20150721
  Serious: Yes (Hospitalization)
  Sender: FDA-Public Use
  Company Number: None

PATIENT
  Age: 58 Year
  Sex: Male
  Weight: 106.7 kg

DRUGS (6)
  1. PROCHLORPERAZINE. [Concomitant]
     Active Substance: PROCHLORPERAZINE
  2. ONDANSETRON [Concomitant]
     Active Substance: ONDANSETRON
  3. IRINOTECAN [Suspect]
     Active Substance: IRINOTECAN
     Indication: OESOPHAGEAL CARCINOMA
     Dosage: 125 MG/M2, D 1 + D8  Q21DAY, IV
     Route: 042
     Dates: start: 20150202, end: 20150202
  4. SELINEXOR [Suspect]
     Active Substance: SELINEXOR
     Indication: OESOPHAGEAL CARCINOMA
     Dosage: 40MG/2, D1, D3, D8, D10
     Dates: start: 20150202, end: 20150202
  5. LISINOPRIL. [Concomitant]
     Active Substance: LISINOPRIL
  6. DEXAMETHASONE. [Concomitant]
     Active Substance: DEXAMETHASONE

REACTIONS (6)
  - Vomiting [None]
  - Dyspepsia [None]
  - Oesophageal ulcer [None]
  - Retching [None]
  - Nausea [None]
  - Condition aggravated [None]

NARRATIVE: CASE EVENT DATE: 20150205
